FAERS Safety Report 26073560 (Version 1)
Quarter: 2025Q4

REPORT INFORMATION
  Report Type: Spontaneous
  Country: AU (occurrence: AU)
  Receive Date: 20251121
  Receipt Date: 20251121
  Transmission Date: 20260117
  Serious: No
  Sender: ALKEM
  Company Number: AU-ALKEM LABORATORIES LIMITED-GR-ALKEM-2025-06058

PATIENT
  Age: 73 Year
  Sex: Male
  Weight: 97.8 kg

DRUGS (2)
  1. FOSFOMYCIN [Suspect]
     Active Substance: FOSFOMYCIN
     Indication: Prostatitis
     Dosage: 3 GRAM, OD (15 WEEKS, 2 DAYS), DOSE REDUCED
     Route: 048
  2. FOSFOMYCIN [Suspect]
     Active Substance: FOSFOMYCIN
     Dosage: 3 GRAM, BID (FOR 5 DAYS)
     Route: 048

REACTIONS (2)
  - Defaecation urgency [Unknown]
  - Diarrhoea [Recovering/Resolving]
